FAERS Safety Report 9010403 (Version 3)
Quarter: 2013Q1

REPORT INFORMATION
  Report Type: Spontaneous
  Country: US (occurrence: US)
  Receive Date: 20130109
  Receipt Date: 20130220
  Transmission Date: 20140127
  Serious: No
  Sender: FDA-Public Use
  Company Number: US-ASTRAZENECA-2013SE00774

PATIENT
  Age: 65 Year
  Sex: Female
  Weight: 99.8 kg

DRUGS (6)
  1. ARIMIDEX [Suspect]
     Indication: BREAST CANCER FEMALE
     Route: 048
     Dates: start: 200809
  2. TOPROL [Suspect]
     Indication: HYPERTENSION
     Route: 048
  3. NUVIGIL [Concomitant]
     Indication: FATIGUE
  4. CELEXA [Concomitant]
     Indication: DEPRESSION
  5. SYNTHROID [Concomitant]
     Indication: HYPOTHYROIDISM
  6. VITAMINS [Concomitant]
     Indication: SUPPLEMENTATION THERAPY

REACTIONS (2)
  - Abdominal discomfort [Not Recovered/Not Resolved]
  - Drug dose omission [Unknown]
